FAERS Safety Report 9398983 (Version 1)
Quarter: 2013Q3

REPORT INFORMATION
  Report Type: Report from Study
  Country: US (occurrence: US)
  Receive Date: 20130714
  Receipt Date: 20130714
  Transmission Date: 20140515
  Serious: Yes (Hospitalization, Other)
  Sender: FDA-Public Use
  Company Number: PHHY2013US070033

PATIENT
  Age: 64 Year
  Sex: Female

DRUGS (4)
  1. EVEROLIMUS [Suspect]
     Indication: OVARIAN EPITHELIAL CANCER
     Dosage: 10 MG, DAILY
     Route: 048
     Dates: start: 20111006, end: 20120118
  2. EVEROLIMUS [Suspect]
     Indication: OFF LABEL USE
  3. BEVACIZUMAB [Suspect]
     Indication: OVARIAN EPITHELIAL CANCER
     Dosage: ON DAY 1 AND DAY 15 OF EVERY 4 WEEK CYCLE
     Route: 042
     Dates: start: 20111006, end: 20120118
  4. STEROIDS NOS [Concomitant]

REACTIONS (16)
  - Dyspnoea [Recovered/Resolved]
  - Abdominal hernia [Unknown]
  - Hypophosphataemia [Recovered/Resolved]
  - Small intestinal obstruction [Recovering/Resolving]
  - Bowel movement irregularity [Recovering/Resolving]
  - Nausea [Recovering/Resolving]
  - Vomiting [Recovering/Resolving]
  - Abdominal distension [Recovering/Resolving]
  - Abdominal pain [Recovering/Resolving]
  - Diarrhoea [Recovering/Resolving]
  - Cardiac failure congestive [Unknown]
  - Hypomagnesaemia [Unknown]
  - Hypoalbuminaemia [Unknown]
  - Hypocalcaemia [Unknown]
  - Neoplasm progression [Unknown]
  - Lymphopenia [Unknown]
